FAERS Safety Report 9604337 (Version 1)
Quarter: 2013Q4

REPORT INFORMATION
  Report Type: Report from Study
  Country: CA (occurrence: CA)
  Receive Date: 20131008
  Receipt Date: 20131008
  Transmission Date: 20140711
  Serious: Yes (Hospitalization)
  Sender: FDA-Public Use
  Company Number: CA-JNJFOC-20131001043

PATIENT
  Sex: Male
  Weight: 34.93 kg

DRUGS (2)
  1. REMICADE [Suspect]
     Indication: CROHN^S DISEASE
     Route: 042
  2. HUMIRA [Suspect]
     Indication: CROHN^S DISEASE
     Route: 065

REACTIONS (3)
  - Colitis [Unknown]
  - Nonspecific reaction [Unknown]
  - Crohn^s disease [Unknown]
